FAERS Safety Report 20608373 (Version 1)
Quarter: 2022Q1

REPORT INFORMATION
  Report Type: Spontaneous
  Country: US (occurrence: US)
  Receive Date: 20220317
  Receipt Date: 20220317
  Transmission Date: 20220423
  Serious: No
  Sender: FDA-Public Use
  Company Number: US-PIERREL PHARMA S.R.L.-2021PIR00046

PATIENT
  Age: 13 Year
  Sex: Female

DRUGS (1)
  1. ARTICAINE HCL AND EPINEPHRINE [Suspect]
     Active Substance: ARTICAINE HYDROCHLORIDE\EPINEPHRINE BITARTRATE

REACTIONS (1)
  - Dizziness [Recovered/Resolved]
